FAERS Safety Report 9831692 (Version 1)
Quarter: 2014Q1

REPORT INFORMATION
  Report Type: Report from Study
  Country: CA (occurrence: CA)
  Receive Date: 20140121
  Receipt Date: 20140121
  Transmission Date: 20141002
  Serious: Yes (Other)
  Sender: FDA-Public Use
  Company Number: CA-JNJFOC-20140105792

PATIENT
  Age: 46 Year
  Sex: Female

DRUGS (12)
  1. STELARA [Suspect]
     Indication: PSORIASIS
     Dosage: 0.5 ML SYRINGE
     Route: 058
     Dates: end: 20140113
  2. CITALOPRAM [Concomitant]
     Route: 048
  3. QUETIAPINE [Concomitant]
     Route: 048
  4. MIRTAZAPINE [Concomitant]
     Route: 048
  5. ATORVASTATIN [Concomitant]
     Route: 048
  6. ARTHROTEC [Concomitant]
     Dosage: PRN (AS NECESSARY)
     Route: 048
  7. SYNTHROID [Concomitant]
     Route: 048
  8. FERROUS GLUCONATE [Concomitant]
     Route: 048
  9. VITAMIN B12 [Concomitant]
     Route: 048
  10. VITAMIN D [Concomitant]
     Route: 048
  11. OMEPRAZOLE [Concomitant]
     Route: 048
  12. ESTROGEN [Concomitant]
     Route: 061

REACTIONS (1)
  - Breast cancer [Unknown]
